FAERS Safety Report 11232087 (Version 3)
Quarter: 2015Q3

REPORT INFORMATION
  Report Type: Spontaneous
  Country: US (occurrence: US)
  Receive Date: 20150701
  Receipt Date: 20150928
  Transmission Date: 20151125
  Serious: Yes (Hospitalization, Other)
  Sender: FDA-Public Use
  Company Number: US-PFIZER INC-2015218352

PATIENT
  Age: 88 Year
  Sex: Female

DRUGS (1)
  1. CELECOXIB. [Suspect]
     Active Substance: CELECOXIB
     Indication: ARTHRITIS
     Dosage: 20 MG, 2X/DAY
     Dates: start: 20150111

REACTIONS (5)
  - Drug ineffective [Unknown]
  - Mobility decreased [Recovered/Resolved]
  - Polyarthritis [Recovered/Resolved]
  - Joint stiffness [Recovered/Resolved]
  - Quality of life decreased [Recovered/Resolved]

NARRATIVE: CASE EVENT DATE: 20150121
